FAERS Safety Report 8583921 (Version 2)
Quarter: 2012Q4

REPORT INFORMATION
  Report Type: 
  Country: CA (occurrence: CA)
  Receive Date: 20120529
  Receipt Date: 20121019
  Transmission Date: 20130627
  Serious: Yes (Hospitalization)
  Sender: FDA-Public Use
  Company Number: CA-JNJFOC-20120516645

PATIENT

DRUGS (1)
  1. ITRACONAZOLE [Suspect]
     Indication: ASPERGILLOSIS
     Dosage: 5 mg/kg/day
     Route: 048

REACTIONS (1)
  - Pneumothorax [Unknown]
